FAERS Safety Report 5316361-5 (Version None)
Quarter: 2007Q2

REPORT INFORMATION
  Report Type: 
  Country: None (occurrence: None)
  Receive Date: 20070430
  Receipt Date: 20070405
  Transmission Date: 20071010
  Serious: Yes (Other)
  Sender: FDA-Public Use
  Company Number: 2007SP007191

PATIENT
  Age: 82 Year
  Sex: Male

DRUGS (6)
  1. MIRALAX [Suspect]
     Indication: CONSTIPATION
     Dosage: PO
     Route: 048
     Dates: start: 20070404
  2. COUMADIN [Suspect]
     Dosage: PO
     Route: 048
  3. ASPIRIN [Concomitant]
  4. DILANTIN [Concomitant]
  5. PROSCAR [Concomitant]
  6. LIPITOR [Concomitant]

REACTIONS (1)
  - FAECES DISCOLOURED [None]
